FAERS Safety Report 5737921-3 (Version None)
Quarter: 2008Q2

REPORT INFORMATION
  Report Type: 
  Country: None (occurrence: None)
  Receive Date: 20080509
  Receipt Date: 20080425
  Transmission Date: 20081010
  Serious: Yes (Other)
  Sender: FDA-Public Use
  Company Number: DSA_62102_2008

PATIENT
  Sex: Male

DRUGS (1)
  1. MYSOLINE [Suspect]
     Indication: ESSENTIAL TREMOR
     Dosage: (250 MG 1X NOT THE PRESCRIBED AMOUNT ORAL)
     Route: 048

REACTIONS (4)
  - BALANCE DISORDER [None]
  - DIZZINESS [None]
  - DRUG ADMINISTRATION ERROR [None]
  - NAUSEA [None]
